FAERS Safety Report 4432324-6 (Version None)
Quarter: 2004Q3

REPORT INFORMATION
  Report Type: 
  Country: None (occurrence: None)
  Receive Date: 20040820
  Receipt Date: 20040805
  Transmission Date: 20050211
  Serious: Yes (Life-Threatening)
  Sender: FDA-Public Use
  Company Number: 04P-062-0269432-00

PATIENT
  Age: 69 Year
  Sex: Female

DRUGS (3)
  1. CLARITHROMYCIN [Suspect]
     Indication: PEPTIC ULCER
     Dosage: 500 MG, 2 IN 1 D, ORAL
     Route: 048
     Dates: start: 20040708, end: 20040713
  2. PANTOPRAZOLE [Suspect]
     Indication: PEPTIC ULCER
     Dosage: 40 MG, 2 IN 1 D, ORAL
     Route: 048
     Dates: start: 20040708, end: 20040713
  3. AMOXICILLIN TRIHYDRATE [Suspect]
     Indication: PEPTIC ULCER
     Dosage: 1000 MG, 2 IN 1 D, ORAL
     Route: 048
     Dates: start: 20040708, end: 20040713

REACTIONS (3)
  - HAEMATOMA [None]
  - PETECHIAE [None]
  - THROMBOCYTOPENIA [None]
